FAERS Safety Report 25260504 (Version 1)
Quarter: 2025Q2

REPORT INFORMATION
  Report Type: Spontaneous
  Country: US (occurrence: US)
  Receive Date: 20250501
  Receipt Date: 20250501
  Transmission Date: 20250717
  Serious: Yes (Hospitalization)
  Sender: MYLAN
  Company Number: US-MYLANLABS-2025M1036088

PATIENT
  Age: 70 Year
  Sex: Female

DRUGS (28)
  1. MYCOPHENOLATE MOFETIL [Suspect]
     Active Substance: MYCOPHENOLATE MOFETIL
     Indication: Prophylaxis against transplant rejection
  2. MYCOPHENOLATE MOFETIL [Suspect]
     Active Substance: MYCOPHENOLATE MOFETIL
     Route: 065
  3. MYCOPHENOLATE MOFETIL [Suspect]
     Active Substance: MYCOPHENOLATE MOFETIL
     Route: 065
  4. MYCOPHENOLATE MOFETIL [Suspect]
     Active Substance: MYCOPHENOLATE MOFETIL
  5. METHYLPREDNISOLONE [Suspect]
     Active Substance: METHYLPREDNISOLONE
     Indication: Prophylaxis against transplant rejection
  6. METHYLPREDNISOLONE [Suspect]
     Active Substance: METHYLPREDNISOLONE
     Route: 042
  7. METHYLPREDNISOLONE [Suspect]
     Active Substance: METHYLPREDNISOLONE
     Route: 042
  8. METHYLPREDNISOLONE [Suspect]
     Active Substance: METHYLPREDNISOLONE
  9. BASILIXIMAB [Suspect]
     Active Substance: BASILIXIMAB
     Indication: Prophylaxis against transplant rejection
  10. BASILIXIMAB [Suspect]
     Active Substance: BASILIXIMAB
     Route: 042
  11. BASILIXIMAB [Suspect]
     Active Substance: BASILIXIMAB
     Route: 042
  12. BASILIXIMAB [Suspect]
     Active Substance: BASILIXIMAB
  13. PROPOFOL [Suspect]
     Active Substance: PROPOFOL
     Indication: Induction of anaesthesia
  14. PROPOFOL [Suspect]
     Active Substance: PROPOFOL
     Route: 065
  15. PROPOFOL [Suspect]
     Active Substance: PROPOFOL
     Route: 065
  16. PROPOFOL [Suspect]
     Active Substance: PROPOFOL
  17. SEVOFLURANE [Suspect]
     Active Substance: SEVOFLURANE
     Indication: Maintenance of anaesthesia
  18. SEVOFLURANE [Suspect]
     Active Substance: SEVOFLURANE
     Route: 065
  19. SEVOFLURANE [Suspect]
     Active Substance: SEVOFLURANE
     Route: 065
  20. SEVOFLURANE [Suspect]
     Active Substance: SEVOFLURANE
  21. FENTANYL [Concomitant]
     Active Substance: FENTANYL
     Indication: Induction of anaesthesia
  22. FENTANYL [Concomitant]
     Active Substance: FENTANYL
     Route: 065
  23. FENTANYL [Concomitant]
     Active Substance: FENTANYL
     Route: 065
  24. FENTANYL [Concomitant]
     Active Substance: FENTANYL
  25. ROCURONIUM [Concomitant]
     Active Substance: ROCURONIUM BROMIDE
     Indication: Induction of anaesthesia
  26. ROCURONIUM [Concomitant]
     Active Substance: ROCURONIUM BROMIDE
     Route: 065
  27. ROCURONIUM [Concomitant]
     Active Substance: ROCURONIUM BROMIDE
     Route: 065
  28. ROCURONIUM [Concomitant]
     Active Substance: ROCURONIUM BROMIDE

REACTIONS (4)
  - Liver injury [Recovered/Resolved]
  - Metabolic acidosis [Recovered/Resolved]
  - Coagulopathy [Recovered/Resolved]
  - Drug ineffective [Unknown]
